FAERS Safety Report 22640388 (Version 1)
Quarter: 2023Q2

REPORT INFORMATION
  Report Type: Spontaneous
  Country: DK (occurrence: DK)
  Receive Date: 20230626
  Receipt Date: 20230626
  Transmission Date: 20230722
  Serious: Yes (Hospitalization)
  Sender: FDA-Public Use
  Company Number: None

PATIENT
  Age: 72 Year
  Sex: Male

DRUGS (1)
  1. QUETIAPINE [Suspect]
     Active Substance: QUETIAPINE
     Indication: Depression
     Dosage: 300 MG, QD
     Route: 048
     Dates: start: 2021

REACTIONS (1)
  - Bone marrow disorder [Not Recovered/Not Resolved]

NARRATIVE: CASE EVENT DATE: 20230429
